FAERS Safety Report 12384736 (Version 2)
Quarter: 2020Q1

REPORT INFORMATION
  Report Type: Spontaneous
  Country: US (occurrence: US)
  Receive Date: 20160519
  Receipt Date: 20200303
  Transmission Date: 20200409
  Serious: Yes (Hospitalization, Other)
  Sender: FDA-Public Use
  Company Number: US-PFIZER INC-2016261535

PATIENT
  Age: 71 Year
  Sex: Female
  Weight: 61.23 kg

DRUGS (1)
  1. XELJANZ [Suspect]
     Active Substance: TOFACITINIB CITRATE
     Indication: RHEUMATOID ARTHRITIS
     Dosage: 5MG (1 TABLET), TWICE DAILY
     Route: 048

REACTIONS (5)
  - Herpes zoster [Unknown]
  - Pneumonia [Unknown]
  - Osteoporosis [Unknown]
  - Hypoacusis [Unknown]
  - Heart rate increased [Unknown]
